FAERS Safety Report 8117966-9 (Version None)
Quarter: 2011Q4

REPORT INFORMATION
  Report Type: 
  Country: None (occurrence: None)
  Receive Date: 20111227
  Receipt Date: 20110531
  Transmission Date: 20120403
  Serious: Yes (Other)
  Sender: FDA-Public Use
  Company Number: PHHY2011US48099

PATIENT
  Sex: Female

DRUGS (3)
  1. FEMARA [Suspect]
     Dosage: 2.5 MG, 1X DAY
     Dates: start: 20110101
  2. VITAMINS (NO INGREDIENTS/SUBSTANCES) [Concomitant]
  3. HERCEPTIN [Concomitant]

REACTIONS (8)
  - CONSTIPATION [None]
  - SWELLING [None]
  - FLUID RETENTION [None]
  - ASTHENIA [None]
  - PAIN IN EXTREMITY [None]
  - ABASIA [None]
  - ABDOMINAL PAIN [None]
  - GAIT DISTURBANCE [None]
